FAERS Safety Report 4836176-1 (Version None)
Quarter: 2005Q4

REPORT INFORMATION
  Report Type: 
  Country: None (occurrence: None)
  Receive Date: 20051121
  Receipt Date: 20051121
  Transmission Date: 20060501
  Serious: Yes (Other)
  Sender: FDA-Public Use
  Company Number: None

PATIENT
  Age: 35 Year
  Sex: Female
  Weight: 87.5442 kg

DRUGS (5)
  1. YASMIN [Suspect]
     Indication: ENDOMETRIOSIS
     Dosage: 1 PILL   DAILY   PO
     Route: 048
     Dates: start: 20050521, end: 20050901
  2. YASMIN [Suspect]
     Indication: OVARIAN CYST
     Dosage: 1 PILL   DAILY   PO
     Route: 048
     Dates: start: 20050521, end: 20050901
  3. FLONASE [Concomitant]
  4. VICODIN [Concomitant]
  5. DYAZIDE [Concomitant]

REACTIONS (5)
  - DIFFICULTY IN WALKING [None]
  - FEELING ABNORMAL [None]
  - FLUID RETENTION [None]
  - OEDEMA PERIPHERAL [None]
  - PAIN [None]
